FAERS Safety Report 6047410-7 (Version None)
Quarter: 2009Q1

REPORT INFORMATION
  Report Type: 
  Country: None (occurrence: None)
  Receive Date: 20090122
  Receipt Date: 20090121
  Transmission Date: 20090719
  Serious: No
  Sender: FDA-Public Use
  Company Number: US-B.I. PHARMACEUTICALS,INC./RIDGEFIELD-2008-BP-18344BP

PATIENT
  Sex: Female

DRUGS (5)
  1. SPIRIVA [Suspect]
     Indication: CHRONIC OBSTRUCTIVE PULMONARY DISEASE
     Dosage: 18MCG
     Dates: start: 20080901
  2. SPIRIVA [Suspect]
     Indication: BRONCHITIS CHRONIC
  3. SPIRIVA [Suspect]
     Indication: DYSPNOEA
  4. ADVAIR DISKUS 100/50 [Suspect]
     Indication: DYSPNOEA
     Dates: start: 20080901, end: 20081001
  5. ALBUTEROL SULFATE [Concomitant]
     Indication: DYSPNOEA

REACTIONS (2)
  - DYSPHONIA [None]
  - THROAT IRRITATION [None]
